FAERS Safety Report 3123117 (Version 2)
Quarter: 2020Q3

REPORT INFORMATION
  Report Type: Spontaneous
  Country: US (occurrence: None)
  Receive Date: 19971203
  Receipt Date: 19971212
  Transmission Date: 20201104
  Serious: Yes (Death, Hospitalization)
  Sender: FDA-Public Use
  Company Number: 97002009

PATIENT
  Age: 59 Year
  Sex: Female
  Weight: 68.1 kg

DRUGS (10)
  1. DILANTIN [Concomitant]
     Active Substance: PHENYTOIN
  2. PROVERA [Concomitant]
     Active Substance: MEDROXYPROGESTERONE ACETATE
  3. PREMARIN [Concomitant]
     Active Substance: ESTROGENS, CONJUGATED
  4. COUMADIN [Concomitant]
     Active Substance: WARFARIN SODIUM
  5. LASIX [Concomitant]
     Active Substance: FUROSEMIDE
  6. PHOTOFRIN [Suspect]
     Active Substance: PORFIMER SODIUM
     Indication: BARRETT^S OESOPHAGUS
     Dosage: 137.2 MG ONCE IV
     Route: 042
     Dates: start: 19970922, end: 19970922
  7. PREVACID [Concomitant]
     Active Substance: LANSOPRAZOLE
  8. MEPHOBARBITAL. [Suspect]
     Active Substance: MEPHOBARBITAL
  9. CALCIUM [Concomitant]
     Active Substance: CALCIUM
  10. FERROUS SULFATE. [Concomitant]
     Active Substance: FERROUS SULFATE

REACTIONS (7)
  - Venous thrombosis [None]
  - Arterial thrombosis [None]
  - Haemorrhage [None]
  - Overdose [None]
  - Porphyria [None]
  - Necrosis ischaemic [None]
  - Drug interaction [None]

NARRATIVE: CASE EVENT DATE: 19970927
